FAERS Safety Report 10897866 (Version 2)
Quarter: 2015Q2

REPORT INFORMATION
  Report Type: Report from Study
  Country: DE (occurrence: CO)
  Receive Date: 20150309
  Receipt Date: 20150604
  Transmission Date: 20150821
  Serious: Yes (Other)
  Sender: FDA-Public Use
  Company Number: DE-ACTELION-A-NJ2015-114202

PATIENT
  Age: 34 Year
  Sex: Female

DRUGS (5)
  1. BOSENTAN [Concomitant]
     Active Substance: BOSENTAN\BOSENTAN MONOHYDRATE
     Dosage: UNK
  2. FUROSEMIDA [Concomitant]
     Active Substance: FUROSEMIDE
     Dosage: UNK
  3. ESPIRONOLACTONA [Concomitant]
     Active Substance: SPIRONOLACTONE
     Dosage: UNK
  4. VENTAVIS [Suspect]
     Active Substance: ILOPROST
     Indication: PULMONARY HYPERTENSION
     Dosage: 10 MCG/ML, Q4HR
     Route: 055
     Dates: start: 20100705
  5. SILDENAFIL. [Concomitant]
     Active Substance: SILDENAFIL

REACTIONS (6)
  - Cough [Not Recovered/Not Resolved]
  - Device malfunction [Unknown]
  - Fatigue [Unknown]
  - Asphyxia [Not Recovered/Not Resolved]
  - Thermal burn [Unknown]
  - Headache [Unknown]

NARRATIVE: CASE EVENT DATE: 20150125
